FAERS Safety Report 11866884 (Version 1)
Quarter: 2015Q4

REPORT INFORMATION
  Report Type: Spontaneous
  Country: US (occurrence: US)
  Receive Date: 20151224
  Receipt Date: 20151224
  Transmission Date: 20160305
  Serious: No
  Sender: FDA-Public Use
  Company Number: US-GLENMARK PHARMACEUTICALS INC, USA.-2015GMK020134

PATIENT
  Age: 35 Year
  Sex: Male

DRUGS (2)
  1. STEROID ANTIBACTERIALS [Concomitant]
     Active Substance: UNSPECIFIED INGREDIENT
     Indication: HISTOPLASMOSIS
     Dosage: UNK
     Route: 042
  2. VORICONAZOLE TABLETS [Suspect]
     Active Substance: VORICONAZOLE
     Indication: HISTOPLASMOSIS
     Dosage: 300 MG, BID

REACTIONS (4)
  - Rash erythematous [Unknown]
  - Rash generalised [Unknown]
  - Exfoliative rash [Unknown]
  - Off label use [Unknown]
